FAERS Safety Report 8548992 (Version 5)
Quarter: 2013Q1

REPORT INFORMATION
  Report Type: Spontaneous
  Country: GB (occurrence: GB)
  Receive Date: 20120507
  Receipt Date: 20130131
  Transmission Date: 20140127
  Serious: Yes (Other)
  Sender: FDA-Public Use
  Company Number: PHFR2012GB001476

PATIENT
  Age: 62 Year
  Sex: Male

DRUGS (5)
  1. CLOZARIL [Suspect]
     Indication: SCHIZOPHRENIA
     Dosage: UNK UKN, UNK
     Route: 048
     Dates: start: 20010701
  2. CLOZARIL [Suspect]
     Dosage: 750 UKN, UNK
  3. PAROXETINE [Concomitant]
     Indication: DEMENTIA
     Dosage: 40 UKN
     Route: 048
     Dates: start: 2011
  4. TRAZODONE [Concomitant]
     Indication: DEMENTIA
     Dosage: 50 UKN
     Route: 048
     Dates: start: 2011
  5. SPIRIVA ^BOEHRINGER INGELHEIM^ [Concomitant]
     Indication: ASTHMA
     Dosage: 2 DF

REACTIONS (9)
  - Gastrointestinal carcinoma [Unknown]
  - Haematochezia [Recovering/Resolving]
  - Emphysema [Unknown]
  - Haemoglobin decreased [Recovering/Resolving]
  - Anxiety [Unknown]
  - Sleep disorder [Unknown]
  - Gastrointestinal disorder [Recovering/Resolving]
  - Hallucination, auditory [Unknown]
  - Neutrophilia [Recovered/Resolved]
